FAERS Safety Report 12344062 (Version 1)
Quarter: 2016Q2

REPORT INFORMATION
  Report Type: Spontaneous
  Country: US (occurrence: US)
  Receive Date: 20160507
  Receipt Date: 20160507
  Transmission Date: 20160815
  Serious: Yes (Hospitalization)
  Sender: FDA-Public Use
  Company Number: US-JNJFOC-20160321252

PATIENT
  Sex: Female
  Weight: 63.5 kg

DRUGS (1)
  1. XARELTO [Suspect]
     Active Substance: RIVAROXABAN
     Indication: THROMBOSIS
     Route: 048
     Dates: start: 2016, end: 2016

REACTIONS (3)
  - Diarrhoea haemorrhagic [Recovered/Resolved]
  - Haematemesis [Recovered/Resolved]
  - Abdominal symptom [Recovered/Resolved]

NARRATIVE: CASE EVENT DATE: 2016
